FAERS Safety Report 16894843 (Version 1)
Quarter: 2019Q4

REPORT INFORMATION
  Report Type: Spontaneous
  Country: US (occurrence: US)
  Receive Date: 20191008
  Receipt Date: 20191008
  Transmission Date: 20200122
  Serious: No
  Sender: FDA-Public Use
  Company Number: US-INDIVIOR US-INDV-114545-2018

PATIENT
  Sex: Male

DRUGS (3)
  1. SUBOXONE [Suspect]
     Active Substance: BUPRENORPHINE HYDROCHLORIDE\NALOXONE HYDROCHLORIDE
     Indication: DRUG DEPENDENCE
     Dosage: 8 MG, BID
     Route: 060
  2. BUPRENORPHINE TABLET GENERIC [Suspect]
     Active Substance: BUPRENORPHINE
     Dosage: 8 MG, BID
     Route: 060
     Dates: end: 201809
  3. BUPRENORPHINE TABLET GENERIC [Suspect]
     Active Substance: BUPRENORPHINE
     Indication: DRUG DEPENDENCE
     Dosage: 8 MG, BID
     Route: 060

REACTIONS (8)
  - Abdominal discomfort [Recovered/Resolved]
  - Intentional product misuse [Recovered/Resolved]
  - Inappropriate schedule of product administration [Recovered/Resolved]
  - Stomatitis [Recovered/Resolved]
  - Feeling abnormal [Recovered/Resolved]
  - Theft [Recovered/Resolved]
  - Therapy cessation [Recovered/Resolved]
  - Drug dependence [Not Recovered/Not Resolved]

NARRATIVE: CASE EVENT DATE: 201809
